FAERS Safety Report 12956233 (Version 1)
Quarter: 2016Q4

REPORT INFORMATION
  Report Type: Spontaneous
  Country: US (occurrence: US)
  Receive Date: 20161118
  Receipt Date: 20161118
  Transmission Date: 20170207
  Serious: No
  Sender: FDA-Public Use
  Company Number: US-JNJFOC-20161023128

PATIENT
  Age: 78 Year
  Sex: Female
  Weight: 71.67 kg

DRUGS (1)
  1. TYLENOL EXTRA STRENGTH [Suspect]
     Active Substance: ACETAMINOPHEN
     Indication: HERPES ZOSTER
     Dosage: 1-2 CAPLETS, EVERY 6 HOURS SINCE TWO MONTHS
     Route: 048

REACTIONS (1)
  - Intentional product use issue [Unknown]
